FAERS Safety Report 5210924-3 (Version None)
Quarter: 2007Q1

REPORT INFORMATION
  Report Type: 
  Country: None (occurrence: None)
  Receive Date: 20070117
  Receipt Date: 20070112
  Transmission Date: 20070707
  Serious: Yes (Other)
  Sender: FDA-Public Use
  Company Number: NZ-BOEHRINGER INGELHEIM GMBH, GERMANY-2007-DE-00227GD

PATIENT
  Sex: Female

DRUGS (3)
  1. MEXILETINE HYDROCHLORIDE [Suspect]
     Indication: PAIN
  2. METHADONE [Suspect]
     Indication: PAIN
  3. AMITRIPTYLINE HCL [Suspect]
     Indication: PAIN

REACTIONS (1)
  - DRUG EFFECT DECREASED [None]
